FAERS Safety Report 16413567 (Version 1)
Quarter: 2019Q2

REPORT INFORMATION
  Report Type: Spontaneous
  Country: US (occurrence: US)
  Receive Date: 20190503
  Receipt Date: 20190503
  Transmission Date: 20190711
  Serious: No
  Sender: FDA-Public Use
  Company Number: None

PATIENT
  Age: 44 Year
  Sex: Female
  Weight: 122.47 kg

DRUGS (1)
  1. OTREXUP [Suspect]
     Active Substance: METHOTREXATE
     Indication: PSORIASIS
     Dosage: ?          OTHER DOSE:20MG (0.4ML);?
     Route: 058
     Dates: start: 201805

REACTIONS (4)
  - Arthritis [None]
  - Thyroid hormones decreased [None]
  - Product dose omission [None]
  - Malaise [None]
